FAERS Safety Report 15498460 (Version 1)
Quarter: 2018Q4

REPORT INFORMATION
  Report Type: Report from Study
  Country: None (occurrence: SE)
  Receive Date: 20181015
  Receipt Date: 20181015
  Transmission Date: 20190205
  Serious: Yes (Hospitalization)
  Sender: FDA-Public Use
  Company Number: SE-ABBVIE-18S-150-2518114-00

PATIENT
  Age: 72 Year
  Sex: Female

DRUGS (2)
  1. DUODOPA [Suspect]
     Active Substance: CARBIDOPA\LEVODOPA
     Dosage: CURRENT DOSAGE: MD 8 ML, CD 3.0 ML/H, XD 1.0 ML.
     Route: 050
     Dates: start: 20170210
  2. DUODOPA [Suspect]
     Active Substance: CARBIDOPA\LEVODOPA
     Indication: PARKINSON^S DISEASE
     Route: 050
     Dates: start: 20161117, end: 20170210

REACTIONS (6)
  - Speech disorder [Unknown]
  - Fall [Unknown]
  - Fracture [Unknown]
  - Confusional state [Unknown]
  - Memory impairment [Unknown]
  - Excessive granulation tissue [Unknown]

NARRATIVE: CASE EVENT DATE: 20180317
